FAERS Safety Report 6775657-0 (Version None)
Quarter: 2010Q2

REPORT INFORMATION
  Report Type: 
  Country: None (occurrence: None)
  Receive Date: 20100617
  Receipt Date: 20100607
  Transmission Date: 20101027
  Serious: Yes (Hospitalization, Other)
  Sender: FDA-Public Use
  Company Number: US-GILEAD-2009-0026082

PATIENT
  Sex: Male
  Weight: 72.549 kg

DRUGS (25)
  1. AZTREONAM [Suspect]
     Indication: CYSTIC FIBROSIS
     Route: 055
     Dates: start: 20091130, end: 20091230
  2. AZTREONAM [Suspect]
     Route: 055
     Dates: start: 20091008, end: 20091103
  3. ZITHROMAX [Concomitant]
     Indication: CYSTIC FIBROSIS LUNG
  4. XOPENEX [Concomitant]
     Indication: CYSTIC FIBROSIS LUNG
  5. XOPENEX [Concomitant]
     Indication: ASTHMA
  6. PULMOZYME [Concomitant]
     Indication: CYSTIC FIBROSIS LUNG
  7. IPRATROPIUM BROMIDE [Concomitant]
     Indication: CYSTIC FIBROSIS LUNG
  8. IPRATROPIUM BROMIDE [Concomitant]
     Indication: ASTHMA
  9. ADVAIR DISKUS 100/50 [Concomitant]
     Indication: ASTHMA
  10. ALBUTEROL [Concomitant]
     Indication: ASTHMA
  11. SINGULAIR [Concomitant]
     Indication: ASTHMA
  12. ADEKS VITAMINS [Concomitant]
     Indication: PANCREATIC INSUFFICIENCY
  13. CREON [Concomitant]
     Indication: PANCREATIC INSUFFICIENCY
  14. REGLAN [Concomitant]
     Indication: PANCREATIC INSUFFICIENCY
  15. VITAMIN C [Concomitant]
     Indication: PANCREATIC INSUFFICIENCY
  16. VITAMIN E [Concomitant]
     Indication: PANCREATIC INSUFFICIENCY
  17. ALLEGRA [Concomitant]
     Indication: CHRONIC SINUSITIS
  18. FLONASE [Concomitant]
     Indication: CHRONIC SINUSITIS
  19. ACTIGALL [Concomitant]
     Indication: PORTAL HYPERTENSION
  20. AMBIEN [Concomitant]
     Indication: INSOMNIA
  21. CELEBREX [Concomitant]
     Indication: ARTHROPATHY
  22. FERROUS SULFATE TAB [Concomitant]
     Indication: ANAEMIA PROPHYLAXIS
  23. FERROUS SULFATE TAB [Concomitant]
     Indication: ASTHMA
  24. K-DUR [Concomitant]
     Indication: HYPOKALAEMIA
  25. PRILOSEC [Concomitant]
     Indication: GASTROOESOPHAGEAL REFLUX DISEASE

REACTIONS (1)
  - HAEMOPTYSIS [None]
